FAERS Safety Report 7932003-4 (Version None)
Quarter: 2011Q4

REPORT INFORMATION
  Report Type: 
  Country: None (occurrence: None)
  Receive Date: 20111121
  Receipt Date: 20111117
  Transmission Date: 20120403
  Serious: Yes (Death, Hospitalization, Other)
  Sender: FDA-Public Use
  Company Number: CA-ABBOTT-11P-028-0870412-00

PATIENT
  Sex: Female
  Weight: 49.032 kg

DRUGS (20)
  1. ACETAMINOPHEN [Concomitant]
     Indication: PRODUCT USED FOR UNKNOWN INDICATION
     Route: 048
  2. VITAMIN B-12 [Concomitant]
     Indication: PRODUCT USED FOR UNKNOWN INDICATION
     Route: 030
  3. HUMIRA [Suspect]
     Indication: RHEUMATOID ARTHRITIS
     Route: 058
     Dates: start: 20080708, end: 20100919
  4. TYLENOL W/ CODEINE NO. 3 [Concomitant]
     Indication: PRODUCT USED FOR UNKNOWN INDICATION
  5. DICLOFENAC SODIUM [Concomitant]
     Indication: PRODUCT USED FOR UNKNOWN INDICATION
  6. FLOVENT [Concomitant]
     Indication: PRODUCT USED FOR UNKNOWN INDICATION
     Dosage: PUFFS MDI TWICE A DAY
  7. CALCIUM CARBONATE [Concomitant]
     Indication: PRODUCT USED FOR UNKNOWN INDICATION
  8. FOSAMAX [Concomitant]
     Indication: PRODUCT USED FOR UNKNOWN INDICATION
     Route: 048
  9. HEPARIN [Concomitant]
     Indication: PRODUCT USED FOR UNKNOWN INDICATION
     Route: 058
  10. PREVACID [Concomitant]
     Indication: PRODUCT USED FOR UNKNOWN INDICATION
     Route: 048
  11. SIMVASTATIN [Concomitant]
     Indication: PRODUCT USED FOR UNKNOWN INDICATION
     Route: 048
  12. ADVAIR DISKUS 100/50 [Concomitant]
     Indication: PRODUCT USED FOR UNKNOWN INDICATION
  13. ATROVENT [Concomitant]
     Indication: PRODUCT USED FOR UNKNOWN INDICATION
     Dosage: MDI FOUR TIMES A DAY
  14. QUININE SULFATE [Concomitant]
     Indication: PRODUCT USED FOR UNKNOWN INDICATION
  15. SENNA [Concomitant]
     Indication: PRODUCT USED FOR UNKNOWN INDICATION
     Dosage: EVERY NIGHT
     Route: 048
  16. VITAMIN D [Concomitant]
     Indication: PRODUCT USED FOR UNKNOWN INDICATION
     Route: 048
  17. METHOTREXATE [Concomitant]
     Indication: RHEUMATOID ARTHRITIS
     Route: 048
  18. VOLTAREN [Concomitant]
     Indication: RHEUMATOID ARTHRITIS
  19. OXYCODONE HCL [Concomitant]
     Indication: PRODUCT USED FOR UNKNOWN INDICATION
     Dosage: 5 TO 10 MG, EVERY 4 HOURS AS NEEDED
  20. OXYCODONE HCL [Concomitant]
     Dosage: WITH ADDITIONAL 2.5MG EVERY 4 HOURS AS NEEDED
     Route: 048

REACTIONS (21)
  - HAEMATEMESIS [None]
  - GASTROINTESTINAL MOTILITY DISORDER [None]
  - PULMONARY OEDEMA [None]
  - NAUSEA [None]
  - DECREASED APPETITE [None]
  - DIARRHOEA [None]
  - WEIGHT DECREASED [None]
  - THIRST [None]
  - PNEUMONIA [None]
  - DYSPNOEA [None]
  - EMPHYSEMA [None]
  - PLEURAL EFFUSION [None]
  - LUNG INFECTION [None]
  - MUSCULOSKELETAL STIFFNESS [None]
  - PAIN [None]
  - NON-SMALL CELL LUNG CANCER RECURRENT [None]
  - FATIGUE [None]
  - OXYGEN SATURATION DECREASED [None]
  - GASTROENTERITIS CLOSTRIDIAL [None]
  - ASTHENIA [None]
  - PALLOR [None]
